FAERS Safety Report 25052051 (Version 1)
Quarter: 2025Q1

REPORT INFORMATION
  Report Type: Spontaneous
  Country: FR (occurrence: FR)
  Receive Date: 20250307
  Receipt Date: 20250307
  Transmission Date: 20250409
  Serious: Yes (Other)
  Sender: MERCK SHARP & DOHME LLC
  Company Number: None

PATIENT
  Age: 67 Year
  Sex: Female
  Weight: 55 kg

DRUGS (2)
  1. PEMBROLIZUMAB [Suspect]
     Active Substance: PEMBROLIZUMAB
     Indication: Adenosquamous cell lung cancer stage IV
     Dosage: 200 MG, EVERY 3 WEEKS
     Route: 042
     Dates: start: 20240919, end: 20241212
  2. LEVOFLOXACIN [Suspect]
     Active Substance: LEVOFLOXACIN
     Indication: Pneumonia
     Dosage: 2 DOSAGE FROM, EVERY 1 DAYS
     Route: 048
     Dates: start: 20250103, end: 20250110

REACTIONS (2)
  - Hepatic cytolysis [Recovered/Resolved]
  - Hepatitis cholestatic [Recovering/Resolving]

NARRATIVE: CASE EVENT DATE: 20250112
